FAERS Safety Report 4578531-3 (Version None)
Quarter: 2005Q1

REPORT INFORMATION
  Report Type: 
  Country: None (occurrence: None)
  Receive Date: 20050204
  Receipt Date: 20050204
  Transmission Date: 20050727
  Serious: Yes (Disabling)
  Sender: FDA-Public Use
  Company Number: None

PATIENT
  Age: 45 Year
  Sex: Female
  Weight: 63.5036 kg

DRUGS (1)
  1. NORVASC [Suspect]
     Indication: BLOOD PRESSURE
     Dosage: 1   PER DAY   ORAL
     Route: 048
     Dates: start: 20030301, end: 20041001

REACTIONS (2)
  - GINGIVAL DISORDER [None]
  - TOOTH LOSS [None]
